FAERS Safety Report 16162145 (Version 1)
Quarter: 2019Q2

REPORT INFORMATION
  Report Type: Spontaneous
  Country: US (occurrence: US)
  Receive Date: 20190301
  Receipt Date: 20190301
  Transmission Date: 20190711
  Serious: Yes (Hospitalization)
  Sender: FDA-Public Use
  Company Number: None

PATIENT
  Age: 65 Year
  Sex: Female
  Weight: 73.5 kg

DRUGS (1)
  1. XELODA [Suspect]
     Active Substance: CAPECITABINE
     Dates: end: 20181015

REACTIONS (6)
  - Headache [None]
  - Abdominal pain [None]
  - Anastomotic leak [None]
  - Pyrexia [None]
  - Diarrhoea [None]
  - Abdominal abscess [None]

NARRATIVE: CASE EVENT DATE: 20190204
